FAERS Safety Report 4500665-X (Version None)
Quarter: 2004Q4

REPORT INFORMATION
  Report Type: 
  Country: None (occurrence: None)
  Receive Date: 20041112
  Receipt Date: 20041112
  Transmission Date: 20050328
  Serious: Yes (Life-Threatening)
  Sender: FDA-Public Use
  Company Number: None

PATIENT
  Sex: Male
  Weight: 21.3 kg

DRUGS (7)
  1. CYCLOSPORINE [Suspect]
     Indication: HEART TRANSPLANT
     Dosage: 48 MG PO BID
     Route: 048
     Dates: start: 19970101
  2. CELLCEPT [Concomitant]
  3. PRAVASTATIN [Concomitant]
  4. NORVASC [Concomitant]
  5. ZOLOFT [Concomitant]
  6. VALGANCICLOVIR [Concomitant]
  7. MG SUPPLEMENTS [Concomitant]

REACTIONS (2)
  - LYMPHOPROLIFERATIVE DISORDER [None]
  - PYREXIA [None]
